FAERS Safety Report 6783119-X (Version None)
Quarter: 2010Q2

REPORT INFORMATION
  Report Type: 
  Country: None (occurrence: None)
  Receive Date: 20100622
  Receipt Date: 20100615
  Transmission Date: 20101027
  Serious: Yes (Hospitalization)
  Sender: FDA-Public Use
  Company Number: US-JNJFOC-20100602335

PATIENT
  Age: 45 Year
  Sex: Female
  Weight: 77 kg

DRUGS (18)
  1. TYLENOL W/ CODEINE NO. 3 [Suspect]
     Indication: DRUG USE FOR UNKNOWN INDICATION
     Dosage: AS NEEDED
     Route: 065
  2. MEMANTINE [Suspect]
     Indication: DRUG USE FOR UNKNOWN INDICATION
     Route: 065
  3. UNKNOWN MEDICATION [Suspect]
     Indication: DRUG USE FOR UNKNOWN INDICATION
     Route: 048
  4. RADIOTHERAPY [Suspect]
     Indication: DRUG USE FOR UNKNOWN INDICATION
     Dosage: 137.5 GY/ 15 FRACTIONS (QD, 5 DAYS A WEEK * 3 WEEKS) EXTERNAL BEAM 3D
     Route: 065
  5. RADIOTHERAPY [Suspect]
     Dosage: THERAPY RESTARTED
     Route: 065
  6. DECADRON [Suspect]
     Indication: DRUG USE FOR UNKNOWN INDICATION
     Route: 048
  7. DECADRON [Suspect]
     Route: 048
  8. DECADRON [Suspect]
     Route: 048
  9. DECADRON [Suspect]
     Route: 048
  10. DECADRON [Suspect]
     Route: 048
  11. DECADRON [Suspect]
     Route: 048
  12. DILANTIN [Suspect]
     Indication: DRUG USE FOR UNKNOWN INDICATION
     Route: 048
  13. DECADRON [Suspect]
     Dosage: TAPERING DOSE
     Route: 042
  14. DECADRON [Suspect]
     Route: 042
  15. DECADRON [Suspect]
     Dosage: DISCHARGED ON 1 MG TID
     Route: 042
  16. DECADRON [Suspect]
     Dosage: BOLUS
     Route: 042
  17. DECADRON [Suspect]
     Route: 042
  18. ZANTAC [Concomitant]
     Indication: DRUG USE FOR UNKNOWN INDICATION
     Route: 065

REACTIONS (6)
  - ANAEMIA [None]
  - ASTHENIA [None]
  - CONFUSIONAL STATE [None]
  - FATIGUE [None]
  - PULMONARY EMBOLISM [None]
  - SOMNOLENCE [None]
